FAERS Safety Report 4661866-3 (Version None)
Quarter: 2005Q2

REPORT INFORMATION
  Report Type: 
  Country: None (occurrence: None)
  Receive Date: 20050513
  Receipt Date: 20050505
  Transmission Date: 20051028
  Serious: Yes (Death, Other)
  Sender: FDA-Public Use
  Company Number: US-MERCK-0505USA00813

PATIENT
  Age: 70 Year
  Sex: Female
  Weight: 45 kg

DRUGS (4)
  1. SINGULAIR [Suspect]
     Indication: ASTHMA
     Route: 048
  2. PROVENTIL [Suspect]
     Indication: DYSPNOEA
     Route: 055
     Dates: start: 19930101, end: 20050124
  3. AZMACORT [Suspect]
     Indication: ASTHMA
     Route: 055
  4. SEREVENT [Suspect]
     Indication: ASTHMA
     Route: 055

REACTIONS (9)
  - BACK PAIN [None]
  - DIZZINESS [None]
  - DYSPNOEA [None]
  - HEART RATE INCREASED [None]
  - LOSS OF CONSCIOUSNESS [None]
  - LUNG NEOPLASM [None]
  - MEDICAL DEVICE COMPLICATION [None]
  - RECTAL HAEMORRHAGE [None]
  - SUDDEN DEATH [None]
